FAERS Safety Report 8813165 (Version 1)
Quarter: 2012Q4

REPORT INFORMATION
  Report Type: 
  Country: US (occurrence: US)
  Receive Date: 20120927
  Receipt Date: 20120927
  Transmission Date: 20130627
  Serious: No
  Sender: FDA-Public Use
  Company Number: US-AMGEN-USASP2012037957

PATIENT
  Sex: Female

DRUGS (1)
  1. PROLIA [Suspect]
     Indication: OSTEOPOROSIS POSTMENOPAUSAL
     Dosage: UNK UNK, q6mo
     Dates: start: 20111229

REACTIONS (8)
  - Abdominal pain [Recovered/Resolved]
  - Rash papular [Recovered/Resolved]
  - Feeling abnormal [Recovered/Resolved]
  - Skin discolouration [Recovered/Resolved]
  - Nail disorder [Recovered/Resolved]
  - Back pain [Recovering/Resolving]
  - Myalgia [Recovering/Resolving]
  - Pain in extremity [Recovering/Resolving]
